FAERS Safety Report 19330710 (Version 1)
Quarter: 2021Q2

REPORT INFORMATION
  Report Type: Spontaneous
  Country: BE (occurrence: BE)
  Receive Date: 20210529
  Receipt Date: 20210529
  Transmission Date: 20210717
  Serious: Yes (Other)
  Sender: FDA-Public Use
  Company Number: BE-AUROBINDO-AUR-APL-2021-021690

PATIENT
  Age: 74 Year
  Sex: Male

DRUGS (3)
  1. DEXAMETHASONE. [Suspect]
     Active Substance: DEXAMETHASONE
     Indication: SARS-COV-2 TEST POSITIVE
     Dosage: 6 MILLIGRAM, ONCE A DAY (6MG/D DURING 10 DAYS)
     Route: 065
  2. AMOXICILLIN+CLAVULANIC ACID [Suspect]
     Active Substance: AMOXICILLIN\CLAVULANIC ACID
     Indication: SARS-COV-2 TEST POSITIVE
     Dosage: UNK, 7 DAYS
     Route: 065
  3. METHYLPREDNISOLONE. [Suspect]
     Active Substance: METHYLPREDNISOLONE
     Indication: SARS-COV-2 TEST POSITIVE
     Dosage: 40 MILLIGRAM, ONCE A DAY
     Route: 065

REACTIONS (4)
  - Gastrointestinal haemorrhage [Unknown]
  - Intensive care unit acquired weakness [Unknown]
  - Fungal disease carrier [Unknown]
  - Pneumonia [Unknown]
